FAERS Safety Report 26076801 (Version 1)
Quarter: 2025Q4

REPORT INFORMATION
  Report Type: Spontaneous
  Country: EU (occurrence: EU)
  Receive Date: 20251121
  Receipt Date: 20251121
  Transmission Date: 20260119
  Serious: Yes (Hospitalization)
  Sender: ELI LILLY AND COMPANY
  Company Number: EU-ROCHE-10000426649

PATIENT
  Age: 57 Year
  Sex: Female
  Weight: 89 kg

DRUGS (4)
  1. ABEMACICLIB [Suspect]
     Active Substance: ABEMACICLIB
     Indication: Breast cancer
     Dosage: 300 MG, DAILY
     Route: 048
     Dates: start: 20250512, end: 20251028
  2. GIREDESTRANT [Suspect]
     Active Substance: GIREDESTRANT
     Indication: Breast cancer
     Dosage: 30 MG, DAILY
     Route: 048
     Dates: start: 20250512, end: 20251028
  3. LEVOTHYROXINE SODIUM [Concomitant]
     Active Substance: LEVOTHYROXINE SODIUM
     Indication: Thyroid disorder
     Dosage: DOSE : 25 AND 30 MG
     Route: 048
     Dates: start: 2013
  4. FOSAVANCE [Concomitant]
     Active Substance: ALENDRONATE SODIUM\CHOLECALCIFEROL
     Indication: Osteoporosis
     Dosage: 70/5 MG AND 600 UI , WEEKLY (1/W)
     Route: 048
     Dates: start: 2024

REACTIONS (1)
  - Embolism [Recovering/Resolving]

NARRATIVE: CASE EVENT DATE: 20251028
